FAERS Safety Report 9174410 (Version 1)
Quarter: 2013Q1

REPORT INFORMATION
  Report Type: Spontaneous
  Country: IT (occurrence: None)
  Receive Date: 20130313
  Receipt Date: 20130313
  Transmission Date: 20140127
  Serious: Yes (Other)
  Sender: FDA-Public Use
  Company Number: AUR-APL-2013-02107

PATIENT
  Sex: Female

DRUGS (1)
  1. OLANZAPINE (OLANZAPINE) [Suspect]

REACTIONS (3)
  - Confusional state [None]
  - Headache [None]
  - Psychotic disorder [None]
